FAERS Safety Report 6740443-4 (Version None)
Quarter: 2010Q2

REPORT INFORMATION
  Report Type: 
  Country: None (occurrence: None)
  Receive Date: 20100525
  Receipt Date: 20100521
  Transmission Date: 20101027
  Serious: Yes (Hospitalization)
  Sender: FDA-Public Use
  Company Number: FR-JNJFOC-20070806538

PATIENT
  Age: 24 Year
  Sex: Female

DRUGS (4)
  1. IBUPROFEN [Suspect]
     Indication: MALAISE
     Dosage: UNKNOWN
  2. PARACETAMOL [Concomitant]
  3. ALPRAZOLAM [Concomitant]
     Indication: DEPRESSION
  4. ESCITALOPRAM [Concomitant]
     Indication: DEPRESSION

REACTIONS (2)
  - ACUTE RESPIRATORY FAILURE [None]
  - ALVEOLITIS ALLERGIC [None]
